FAERS Safety Report 17214897 (Version 3)
Quarter: 2020Q2

REPORT INFORMATION
  Report Type: Spontaneous
  Country: JP (occurrence: JP)
  Receive Date: 20191230
  Receipt Date: 20200413
  Transmission Date: 20200713
  Serious: Yes (Death)
  Sender: FDA-Public Use
  Company Number: JP-OTSUKA-2019_043066

PATIENT
  Age: 24 Year
  Sex: Male

DRUGS (6)
  1. SAMSCA [Suspect]
     Active Substance: TOLVAPTAN
     Dosage: 75MG, DAILY DOSE, FREQUENCY UNKNOWN
     Route: 048
     Dates: start: 20190409, end: 20190603
  2. SAMSCA [Suspect]
     Active Substance: TOLVAPTAN
     Dosage: 90MG, DAILY DOSE, FREQUENCY UNKNOWN
     Route: 048
     Dates: start: 20190604, end: 20190708
  3. AZILVA [Concomitant]
     Active Substance: AZILSARTAN KAMEDOXOMIL
     Indication: PRODUCT USED FOR UNKNOWN INDICATION
     Dosage: 10 MG, QD
     Route: 048
     Dates: start: 20190312
  4. SAMSCA [Suspect]
     Active Substance: TOLVAPTAN
     Dosage: 60MG, DAILY DOSE, FREQUENCY UNKNOWN
     Route: 048
     Dates: start: 20190224, end: 20190408
  5. CRESTOR [Concomitant]
     Active Substance: ROSUVASTATIN CALCIUM
     Indication: PRODUCT USED FOR UNKNOWN INDICATION
     Dosage: 2.5 MG, QD
     Route: 048
     Dates: start: 20190604
  6. SAMSCA [Suspect]
     Active Substance: TOLVAPTAN
     Indication: CONGENITAL CYSTIC KIDNEY DISEASE
     Dosage: 120MG, DAILY DOSE, FREQUENCY UNKNOWN
     Route: 048
     Dates: start: 20190709

REACTIONS (1)
  - Completed suicide [Fatal]

NARRATIVE: CASE EVENT DATE: 20191205
